FAERS Safety Report 18339641 (Version 2)
Quarter: 2020Q4

REPORT INFORMATION
  Report Type: Spontaneous
  Country: RU (occurrence: RU)
  Receive Date: 20201002
  Receipt Date: 20201007
  Transmission Date: 20210113
  Serious: No
  Sender: FDA-Public Use
  Company Number: RU-ASTRAZENECA-2020SF25972

PATIENT
  Age: 23 Year
  Sex: Female

DRUGS (12)
  1. OLANZAPINE. [Concomitant]
     Active Substance: OLANZAPINE
     Route: 065
  2. LITHIUM CARBONATE. [Concomitant]
     Active Substance: LITHIUM CARBONATE
     Route: 065
  3. PERICIAZIN [Concomitant]
     Route: 065
  4. LAMOTRIGINE. [Concomitant]
     Active Substance: LAMOTRIGINE
     Route: 065
  5. RISPERIDONUM [Concomitant]
     Active Substance: RISPERIDONE
     Route: 065
  6. VALPROIC ACID. [Concomitant]
     Active Substance: VALPROIC ACID
     Route: 065
  7. QUETIAPINE. [Suspect]
     Active Substance: QUETIAPINE
     Indication: PSYCHOTIC DISORDER
     Route: 048
  8. ESCITALOPRAMUM [Concomitant]
     Route: 065
  9. AMITRIPTILLINI [Concomitant]
     Route: 030
  10. QUETIAPINE. [Suspect]
     Active Substance: QUETIAPINE
     Indication: PSYCHOTIC DISORDER
     Route: 048
  11. RISPERIDONUM [Concomitant]
     Active Substance: RISPERIDONE
     Route: 065
  12. BROMDIHYDROCHLORPHENYLBENZODIAZEPINE [Concomitant]
     Route: 065

REACTIONS (1)
  - Off label use [Unknown]
